FAERS Safety Report 15313471 (Version 3)
Quarter: 2018Q3

REPORT INFORMATION
  Report Type: Spontaneous
  Country: US (occurrence: US)
  Receive Date: 20180824
  Receipt Date: 20180906
  Transmission Date: 20181010
  Serious: No
  Sender: FDA-Public Use
  Company Number: US-AMGEN INC.-USASP2018108203

PATIENT
  Age: 69 Year
  Sex: Female
  Weight: 63.49 kg

DRUGS (30)
  1. SYNTHROID [Concomitant]
     Active Substance: LEVOTHYROXINE SODIUM
     Dosage: 88 MUG, QD
     Route: 048
  2. FELBAMATE. [Concomitant]
     Active Substance: FELBAMATE
     Indication: SEIZURE
     Dosage: UNK
  3. AIMOVIG [Suspect]
     Active Substance: ERENUMAB-AOOE
     Indication: PRODUCT USED FOR UNKNOWN INDICATION
     Dosage: 140 MG, QMO
     Route: 058
     Dates: start: 20180731
  4. CYTOMEL [Concomitant]
     Active Substance: LIOTHYRONINE SODIUM
     Dosage: 5 MUG, QD
  5. CALCIUM [Concomitant]
     Active Substance: CALCIUM
     Dosage: UNK UNK, QD (1)
  6. TYLENOL [Concomitant]
     Active Substance: ACETAMINOPHEN
     Indication: HEADACHE
     Dosage: UNK
  7. FARXIGA [Concomitant]
     Active Substance: DAPAGLIFLOZIN PROPANEDIOL
     Indication: HYPOAESTHESIA
  8. ASPIRIN EC [Concomitant]
     Active Substance: ASPIRIN
     Dosage: 81 MG, QD (DELAYRELEASE)
  9. PRENATAL VITAMINS [Concomitant]
     Active Substance: VITAMINS
     Dosage: UNK UNK, QD (1)
  10. METFORMIN [Concomitant]
     Active Substance: METFORMIN HYDROCHLORIDE
     Dosage: 500 MG, BID (2 TABLETS)
     Route: 048
  11. HYDROCHLOROTHIAZIDE. [Concomitant]
     Active Substance: HYDROCHLOROTHIAZIDE
     Dosage: 25 MG, QD
     Route: 048
  12. LECITHIN [Concomitant]
     Active Substance: LECITHIN
     Dosage: UNK UNK, QD (1)
  13. TAMIFLU [Concomitant]
     Active Substance: OSELTAMIVIR PHOSPHATE
     Indication: INFLUENZA
     Dosage: UNK
     Dates: start: 201802
  14. ZANAFLEX [Concomitant]
     Active Substance: TIZANIDINE HYDROCHLORIDE
     Indication: BRUXISM
     Dosage: 4 MG, UNK
     Route: 048
  15. FARXIGA [Concomitant]
     Active Substance: DAPAGLIFLOZIN PROPANEDIOL
     Indication: MUSCULOSKELETAL PAIN
  16. ZONISAMIDE. [Concomitant]
     Active Substance: ZONISAMIDE
     Indication: BRUXISM
     Dosage: UNK
  17. TRULICITY [Concomitant]
     Active Substance: DULAGLUTIDE
     Dosage: 1.5 MG, QWK (1 APPLICATION INJECT)
     Route: 058
  18. CYMBALTA [Concomitant]
     Active Substance: DULOXETINE HYDROCHLORIDE
     Indication: DEPRESSION
     Dosage: 60 MG, QD (DELAYED RELEASE 1 CAPSULE)
     Route: 048
  19. ESTRACE [Concomitant]
     Active Substance: ESTRADIOL
     Dosage: 0.1 MG, 3 TIMES/WK (1 IN THE VAGINA)
  20. PERCOCET [Concomitant]
     Active Substance: ACETAMINOPHEN\OXYCODONE HYDROCHLORIDE
     Dosage: UNK UNK, AS NECESSARY (1/2 5 PRN)
  21. LINZESS [Concomitant]
     Active Substance: LINACLOTIDE
     Dosage: 290 MUG, QD (1 CAPSULE)
     Route: 048
  22. FAMOTIDINE. [Concomitant]
     Active Substance: FAMOTIDINE
     Dosage: 40 MG, BID
     Route: 048
  23. BIOTIN [Concomitant]
     Active Substance: BIOTIN
     Dosage: UNK UNK, QD (1)
  24. ZONEGRAN [Concomitant]
     Active Substance: ZONISAMIDE
     Indication: BRUXISM
     Dosage: UNK
  25. BACTRIM [Concomitant]
     Active Substance: SULFAMETHOXAZOLE\TRIMETHOPRIM
     Indication: ESCHERICHIA URINARY TRACT INFECTION
     Dosage: UNK
     Dates: start: 2016
  26. TIZANIDINE. [Concomitant]
     Active Substance: TIZANIDINE
     Indication: LIMB DISCOMFORT
     Dosage: 4 MG, UNK (2 TABLET)
     Route: 048
  27. MAGNESIUM W/ZINC [Concomitant]
     Dosage: UNK UNK, QD (1)
  28. VITAMIN C [Concomitant]
     Active Substance: ASCORBIC ACID
     Dosage: UNK UNK, QD (1)
  29. REGLAN [Concomitant]
     Active Substance: METOCLOPRAMIDE HYDROCHLORIDE
     Indication: DIABETIC GASTROPARESIS
     Dosage: UNK
  30. MEROPENEM. [Concomitant]
     Active Substance: MEROPENEM
     Indication: URINARY TRACT INFECTION PSEUDOMONAL
     Dosage: UNK

REACTIONS (26)
  - Nail disorder [Unknown]
  - Tinnitus [Unknown]
  - Wrong technique in product usage process [Unknown]
  - Temperature intolerance [Unknown]
  - Fatigue [Unknown]
  - Pain [Unknown]
  - Paraesthesia [Unknown]
  - Amnesia [Unknown]
  - Oliguria [Unknown]
  - Weight increased [Unknown]
  - Haemorrhoidal haemorrhage [Unknown]
  - Hair disorder [Unknown]
  - Tremor [Unknown]
  - Flatulence [Unknown]
  - Peripheral coldness [Unknown]
  - Dysuria [Unknown]
  - Varicose vein [Unknown]
  - Dizziness [Unknown]
  - Temporomandibular joint syndrome [Unknown]
  - Neck pain [Unknown]
  - Pyrexia [Unknown]
  - Gingival bleeding [Unknown]
  - Oral pain [Unknown]
  - Abdominal pain [Unknown]
  - Fluid retention [Unknown]
  - Myalgia [Not Recovered/Not Resolved]

NARRATIVE: CASE EVENT DATE: 2018
